FAERS Safety Report 14108196 (Version 1)
Quarter: 2017Q4

REPORT INFORMATION
  Report Type: Spontaneous
  Country: US (occurrence: US)
  Receive Date: 20171019
  Receipt Date: 20171019
  Transmission Date: 20180321
  Serious: No
  Sender: FDA-Public Use
  Company Number: US-BAYER-2017-200639

PATIENT
  Age: 71 Year
  Sex: Female
  Weight: 72.97 kg

DRUGS (2)
  1. MIRALAX [Suspect]
     Active Substance: POLYETHYLENE GLYCOL 3350
     Indication: GASTROINTESTINAL DISORDER
     Dosage: 1 DF, QD
     Route: 048
     Dates: start: 201706
  2. BENEFIBER FIBER SUPPLEMENT [Concomitant]
     Dosage: UNK

REACTIONS (4)
  - Product use issue [Unknown]
  - Product taste abnormal [None]
  - Product use complaint [Unknown]
  - Poor quality drug administered [Unknown]

NARRATIVE: CASE EVENT DATE: 201706
